FAERS Safety Report 9200696 (Version 1)
Quarter: 2013Q1

REPORT INFORMATION
  Report Type: Spontaneous
  Country: US (occurrence: US)
  Receive Date: 20130331
  Receipt Date: 20130331
  Transmission Date: 20140127
  Serious: Yes (Congenital Anomaly, Other)
  Sender: FDA-Public Use
  Company Number: US-AMGEN-USASP2013020802

PATIENT
  Sex: Male

DRUGS (1)
  1. ENBREL [Suspect]
     Dosage: 50 MG, QWK
     Route: 064
     Dates: start: 2002

REACTIONS (3)
  - Congenital absence of bile ducts [Not Recovered/Not Resolved]
  - Gallbladder anomaly congenital [Not Recovered/Not Resolved]
  - Liver injury [Not Recovered/Not Resolved]
